FAERS Safety Report 14258746 (Version 1)
Quarter: 2017Q4

REPORT INFORMATION
  Report Type: Spontaneous
  Country: FR (occurrence: FR)
  Receive Date: 20171207
  Receipt Date: 20171207
  Transmission Date: 20180321
  Serious: Yes (Death, Life-Threatening, Other)
  Sender: FDA-Public Use
  Company Number: FR-ZYDUS-018307

PATIENT
  Age: 25 Year
  Sex: Female
  Weight: 84 kg

DRUGS (14)
  1. POTASSIUM [Suspect]
     Active Substance: POTASSIUM
     Indication: TUMOUR LYSIS SYNDROME
     Dosage: ADDED IN PRE DILUTION BAG, FLOW WAS 1 LITER PER HOUR ; CYCLICAL
     Route: 042
     Dates: start: 20170715, end: 20170715
  2. AMIODARONE [Suspect]
     Active Substance: AMIODARONE
     Indication: PRODUCT USED FOR UNKNOWN INDICATION
  3. CALCIUM CHLORIDE/GLUCOSE/LACTIC ACID/MAGNESIUM CHLORIDE/POTASSIUM CHLORIDE/SODIUM CHLORIDE/SODIUM BI [Suspect]
     Active Substance: CALCIUM CL\DEXTROSE\LACTIC ACID\MAGNESIUM CL\POTASSIUM CL\SODIUM BICAR\SODIUM CL
     Indication: HAEMOFILTRATION
     Dosage: 72 LITERS/DAY IN TOTAL
     Route: 042
     Dates: start: 20170715, end: 20170715
  4. NOREPINEPHRINE. [Suspect]
     Active Substance: NOREPINEPHRINE
     Indication: ADVERSE EVENT
     Dosage: UP TO 14 MG/H
     Route: 065
  5. SODIUM BICARBONATE. [Suspect]
     Active Substance: SODIUM BICARBONATE
     Indication: ADVERSE EVENT
     Dosage: 8.4% MOLAR VIALS
     Route: 065
  6. METHYLPREDNISOLONE. [Concomitant]
     Active Substance: METHYLPREDNISOLONE
     Indication: PRODUCT USED FOR UNKNOWN INDICATION
  7. PIPERACILLIN SODIUM/TAZOBACTAM SODIUM [Concomitant]
     Indication: PRODUCT USED FOR UNKNOWN INDICATION
  8. GLUCOSE [Suspect]
     Active Substance: DEXTROSE
     Indication: MEDICATION DILUTION
     Route: 065
     Dates: start: 20170715
  9. EPINEPHRINE. [Suspect]
     Active Substance: EPINEPHRINE
     Indication: ADVERSE EVENT
     Route: 065
  10. INSULIN [Suspect]
     Active Substance: INSULIN NOS
     Indication: ADVERSE EVENT
     Route: 065
     Dates: start: 20170715
  11. HEPARIN [Concomitant]
     Active Substance: HEPARIN SODIUM
     Indication: PRODUCT USED FOR UNKNOWN INDICATION
  12. CALCIUM CHLORIDE/CARBON DIOXIDE/HYDROCHLORIC ACID/MAGNESIUM CHLORIDE/POTASSIUM CHLORIDE/WATER FOR IN (PHOXILIUM) [Suspect]
     Active Substance: CALCIUM CL\MAGNESIUM CL\POTASSIUM CL\SODIUM BICAR\SODIUM CL\SODIUM PHOSPHATE,DIB
     Indication: HAEMOFILTRATION
     Route: 010
  13. RASBURICASE [Suspect]
     Active Substance: RASBURICASE
     Indication: PROPHYLAXIS
     Dosage: 1 INJECTION
     Route: 065
  14. DOBUTAMINE [Suspect]
     Active Substance: DOBUTAMINE\DOBUTAMINE HYDROCHLORIDE
     Indication: ADVERSE EVENT
     Dosage: 7.5 GAMMA/KG/MIN
     Route: 065

REACTIONS (14)
  - Blood phosphorus increased [Unknown]
  - Tumour lysis syndrome [Unknown]
  - Cerebrovascular accident [Unknown]
  - Malaise [Unknown]
  - General physical health deterioration [Unknown]
  - Cardio-respiratory arrest [Fatal]
  - Respiratory failure [Fatal]
  - Nervous system disorder [Fatal]
  - Cardiovascular insufficiency [Fatal]
  - Cerebral haematoma [Unknown]
  - Ventricular fibrillation [Fatal]
  - Incorrect dose administered [Fatal]
  - Hyperkalaemia [Fatal]
  - Renal failure [Fatal]

NARRATIVE: CASE EVENT DATE: 20170715
